FAERS Safety Report 8279286-1 (Version None)
Quarter: 2012Q2

REPORT INFORMATION
  Report Type: 
  Country: None (occurrence: None)
  Receive Date: 20120412
  Receipt Date: 20120224
  Transmission Date: 20120825
  Serious: Yes (Other)
  Sender: FDA-Public Use
  Company Number: CHPA2012US006393

PATIENT
  Age: 67 Year
  Sex: Female

DRUGS (3)
  1. HORMONES NOS [Concomitant]
     Dosage: UNK, UNK
  2. EXCEDRIN EXTRA STRENGTH TABLETS [Suspect]
     Indication: HEADACHE
     Dosage: 1 DF, UNK
     Route: 048
     Dates: end: 20120217
  3. DRUG THERAPY NOS [Concomitant]
     Indication: GASTROOESOPHAGEAL REFLUX DISEASE
     Dosage: UNK, UNK

REACTIONS (6)
  - PAIN [None]
  - NAUSEA [None]
  - MUSCLE SPASMS [None]
  - MALAISE [None]
  - BACTERIAL INFECTION [None]
  - UNDERDOSE [None]
